FAERS Safety Report 21894990 (Version 1)
Quarter: 2023Q1

REPORT INFORMATION
  Report Type: Report from Study
  Country: CO (occurrence: CO)
  Receive Date: 20230122
  Receipt Date: 20230122
  Transmission Date: 20230418
  Serious: Yes (Hospitalization, Other)
  Sender: FDA-Public Use
  Company Number: CO-ABBVIE-4276990

PATIENT
  Age: 85 Year
  Sex: Female
  Weight: 65 kg

DRUGS (2)
  1. HUMIRA [Suspect]
     Active Substance: ADALIMUMAB
     Indication: Rheumatoid arthritis
     Dosage: CITRATE FREE
     Route: 058
     Dates: end: 20221128
  2. HUMIRA [Suspect]
     Active Substance: ADALIMUMAB

REACTIONS (17)
  - Vomiting [Recovered/Resolved]
  - Rheumatoid arthritis [Recovering/Resolving]
  - Oxygen saturation decreased [Recovering/Resolving]
  - Pain [Recovering/Resolving]
  - Pyrexia [Not Recovered/Not Resolved]
  - Diarrhoea [Not Recovered/Not Resolved]
  - Oedema [Recovered/Resolved]
  - COVID-19 [Recovering/Resolving]
  - Gastrointestinal infection [Recovering/Resolving]
  - Facial bones fracture [Unknown]
  - Oedema [Recovering/Resolving]
  - Heart rate increased [Not Recovered/Not Resolved]
  - Fall [Unknown]
  - Diarrhoea [Recovered/Resolved]
  - Vomiting [Not Recovered/Not Resolved]
  - Heart rate increased [Recovered/Resolved]
  - Face injury [Unknown]

NARRATIVE: CASE EVENT DATE: 20221201
